FAERS Safety Report 24291953 (Version 1)
Quarter: 2024Q3

REPORT INFORMATION
  Report Type: Spontaneous
  Country: US (occurrence: US)
  Receive Date: 20240906
  Receipt Date: 20240906
  Transmission Date: 20241017
  Serious: Yes (Disabling)
  Sender: PACIRA
  Company Number: US-ORG100016242-2024000519

PATIENT
  Age: 78 Year
  Sex: Female

DRUGS (1)
  1. ZILRETTA [Suspect]
     Active Substance: TRIAMCINOLONE ACETONIDE
     Indication: Arthralgia
     Dosage: SINGLE DOSE KIT, LEFT KNEE
     Route: 050
     Dates: start: 20240625, end: 20240625

REACTIONS (2)
  - Drug ineffective [Not Recovered/Not Resolved]
  - Recalled product administered [Not Recovered/Not Resolved]
